FAERS Safety Report 6216440-4 (Version None)
Quarter: 2009Q2

REPORT INFORMATION
  Report Type: 
  Country: None (occurrence: None)
  Receive Date: 20090605
  Receipt Date: 20090603
  Transmission Date: 20091009
  Serious: Yes (Death)
  Sender: FDA-Public Use
  Company Number: US-ASTRAZENECA-2009UW14226

PATIENT
  Age: 58 Year
  Sex: Male

DRUGS (5)
  1. SEROQUEL [Suspect]
     Route: 048
     Dates: start: 20070101
  2. EFFEXOR [Suspect]
  3. XANAX [Suspect]
  4. HUMALOG [Concomitant]
  5. NORVASC [Concomitant]

REACTIONS (1)
  - DEATH [None]
